FAERS Safety Report 20307285 (Version 1)
Quarter: 2022Q1

REPORT INFORMATION
  Report Type: Spontaneous
  Country: DE (occurrence: DE)
  Receive Date: 20220107
  Receipt Date: 20220107
  Transmission Date: 20220423
  Serious: Yes (Other)
  Sender: FDA-Public Use
  Company Number: DE-SA-SAC20211110000637

PATIENT
  Age: 48 Year
  Sex: Male

DRUGS (24)
  1. MELPHALAN [Suspect]
     Active Substance: MELPHALAN
     Indication: Product used for unknown indication
     Dosage: 230.78 MILLIGRAM TOTAL (230.78 MG, 1X)
     Route: 042
     Dates: start: 20201013
  2. ENOXAPARIN SODIUM [Suspect]
     Active Substance: ENOXAPARIN SODIUM
     Indication: Prophylaxis
     Dosage: 60 MILLIGRAM, TWO TIMES A DAY (60 MG, BID)
     Route: 058
     Dates: start: 20200807
  3. CYTARABINE [Suspect]
     Active Substance: CYTARABINE
     Indication: Product used for unknown indication
     Dosage: 329.68 MILLIGRAM, TWO TIMES A DAY (329.68 MG, BID)
     Route: 042
     Dates: start: 20201013
  4. CARMUSTINE [Suspect]
     Active Substance: CARMUSTINE
     Indication: Product used for unknown indication
     Dosage: 370.89 MILLIGRAM TOTAL (370.89 MG, 1X)
     Route: 042
     Dates: start: 20201013
  5. ETOPOSIDE [Suspect]
     Active Substance: ETOPOSIDE
     Indication: Product used for unknown indication
     Dosage: 247.26 MILLIGRAM, TWO TIMES A DAY (247.26 MG, BID)
     Route: 065
     Dates: start: 20201013
  6. MEPERIDINE HYDROCHLORIDE [Suspect]
     Active Substance: MEPERIDINE HYDROCHLORIDE
     Indication: Epstein-Barr virus infection
     Dosage: 50 MILLIGRAM TOTAL (50 MG, 1X)
     Route: 042
     Dates: start: 20210119, end: 20210119
  7. MEPERIDINE HYDROCHLORIDE [Suspect]
     Active Substance: MEPERIDINE HYDROCHLORIDE
     Dosage: 25 MILLIGRAM TOTAL (25 MG, 1X)
     Route: 042
     Dates: start: 20210120, end: 20210120
  8. AMPHO-MORONAL [Concomitant]
     Active Substance: AMPHOTERICIN B
     Indication: Prophylaxis
     Dosage: 500 GRAM, FOUR TIMES/DAY (500 G, QID)
     Route: 048
  9. AMPHO-MORONAL [Concomitant]
     Active Substance: AMPHOTERICIN B
     Dosage: UNK
     Route: 065
  10. ATENATIV [Concomitant]
     Active Substance: ANTITHROMBIN III HUMAN
     Indication: Adverse event
     Dosage: 1500 INTERNATIONAL UNIT (1500 IU)
     Route: 042
     Dates: start: 20200901, end: 20200901
  11. ATENATIV [Concomitant]
     Active Substance: ANTITHROMBIN III HUMAN
     Dosage: 1500 INTERNATIONAL UNIT (1500 IU)
     Route: 042
     Dates: start: 20200907, end: 20200907
  12. SULFAMETHOXAZOLE\TRIMETHOPRIM [Concomitant]
     Active Substance: SULFAMETHOXAZOLE\TRIMETHOPRIM
     Indication: Prophylaxis
     Dosage: 2880 MILLIGRAM, EVERY WEEK (960 MG, TIW)
     Route: 048
  13. SULFAMETHOXAZOLE\TRIMETHOPRIM [Concomitant]
     Active Substance: SULFAMETHOXAZOLE\TRIMETHOPRIM
     Dosage: UNK
     Route: 065
  14. ENTECAVIR [Concomitant]
     Active Substance: ENTECAVIR
     Indication: Pre-existing disease
     Dosage: 0.5 MILLIGRAM, ONCE A DAY (0.5 MG, QD)
     Route: 048
     Dates: end: 20210129
  15. FLUCONAZOLE [Concomitant]
     Active Substance: FLUCONAZOLE
     Indication: Product used for unknown indication
     Dosage: 100 MILLIGRAM, ONCE A DAY (100 MG, QD)
     Route: 048
     Dates: start: 20201027, end: 20201105
  16. FOLIC ACID [Concomitant]
     Active Substance: FOLIC ACID
     Indication: Prophylaxis
     Dosage: 0.4 MILLIGRAM, ONCE A DAY (0.4 MG, QD)
     Route: 048
  17. INNOHEP [Concomitant]
     Active Substance: TINZAPARIN SODIUM
     Indication: Prophylaxis
     Dosage: 12000 INTERNATIONAL UNIT, EVERY OTHER DAY (12000 IU, QOD (FOUR TIMES WEEKLY)
     Route: 058
  18. LINEZOLID [Concomitant]
     Active Substance: LINEZOLID
     Indication: Product used for unknown indication
     Dosage: UNK
     Route: 042
     Dates: start: 20210128, end: 20210129
  19. METOCLOPRAMIDE [Concomitant]
     Active Substance: METOCLOPRAMIDE
     Indication: Product used for unknown indication
     Dosage: UNK
     Route: 048
  20. PANTOPRAZOLE [Concomitant]
     Active Substance: PANTOPRAZOLE
     Indication: Prophylaxis
     Dosage: 40 MILLIGRAM, ONCE A DAY (40 MG, QD)
     Route: 048
     Dates: end: 20210129
  21. PROTHROMBIN [Concomitant]
     Active Substance: PROTHROMBIN
     Indication: Product used for unknown indication
     Dosage: UNK
     Route: 042
  22. TAZOBACTAM [Concomitant]
     Active Substance: TAZOBACTAM
     Indication: Product used for unknown indication
     Dosage: UNK G
     Route: 042
     Dates: start: 20200113, end: 20200115
  23. TAZOBACTAM [Concomitant]
     Active Substance: TAZOBACTAM
     Dosage: 0.5 GRAM
     Route: 042
     Dates: start: 20201022, end: 20201026
  24. VALACYCLOVIR HYDROCHLORIDE [Concomitant]
     Active Substance: VALACYCLOVIR HYDROCHLORIDE
     Indication: Prophylaxis
     Dosage: 500 MILLIGRAM, TWO TIMES A DAY(500 MG, BID)
     Route: 048
     Dates: start: 20210129

REACTIONS (2)
  - Lactic acidosis [Not Recovered/Not Resolved]
  - Epstein-Barr virus infection [Not Recovered/Not Resolved]

NARRATIVE: CASE EVENT DATE: 20210113
